FAERS Safety Report 4602668-3 (Version None)
Quarter: 2005Q1

REPORT INFORMATION
  Report Type: 
  Country: None (occurrence: None)
  Receive Date: 20050307
  Receipt Date: 20050207
  Transmission Date: 20050727
  Serious: Yes (Death)
  Sender: FDA-Public Use
  Company Number: 2005026666

PATIENT
  Age: 25 Year
  Sex: Male
  Weight: 75 kg

DRUGS (4)
  1. VIAGRA [Suspect]
     Indication: ILL-DEFINED DISORDER
  2. ANABOLIC STEROIDS (ANABOLIC STEROIDS) [Suspect]
     Indication: ILL-DEFINED DISORDER
  3. COCAINE (COCAINE) [Suspect]
     Indication: ILL-DEFINED DISORDER
  4. PROPRANOLOL [Suspect]
     Indication: ILL-DEFINED DISORDER

REACTIONS (2)
  - DRUG ABUSER [None]
  - SELF-MEDICATION [None]
